FAERS Safety Report 24426116 (Version 2)
Quarter: 2024Q4

REPORT INFORMATION
  Report Type: Other
  Country: ES (occurrence: ES)
  Receive Date: 20241011
  Receipt Date: 20241023
  Transmission Date: 20250114
  Serious: Yes (Other)
  Sender: ALVOGEN
  Company Number: ES-ALVOGEN-2024095637

PATIENT
  Age: 32 Year
  Sex: Male

DRUGS (8)
  1. DOXORUBICIN [Suspect]
     Active Substance: DOXORUBICIN
     Indication: B-cell lymphoma
     Dosage: STANDARD TREATMENT (R-CHOP AND IPI)
  2. CYCLOPHOSPHAMIDE [Suspect]
     Active Substance: CYCLOPHOSPHAMIDE
     Indication: B-cell lymphoma
     Dosage: STANDARD TREATMENT (R-CHOP AND IPI)
  3. PREDNISONE [Suspect]
     Active Substance: PREDNISONE
     Indication: B-cell lymphoma
     Dosage: STANDARD TREATMENT (R-CHOP AND IPI)
  4. RITUXIMAB [Suspect]
     Active Substance: RITUXIMAB
     Indication: B-cell lymphoma
     Dosage: STANDARD TREATMENT (R-CHOP AND IPI)
  5. VINCRISTINE [Suspect]
     Active Substance: VINCRISTINE
     Indication: B-cell lymphoma
     Dosage: STANDARD TREATMENT (R-CHOP AND IPI)
  6. IPILIMUMAB [Suspect]
     Active Substance: IPILIMUMAB
     Indication: B-cell lymphoma
     Dosage: STANDARD TREATMENT (R-CHOP AND IPI)
  7. AZATHIOPRINE [Concomitant]
     Active Substance: AZATHIOPRINE
     Indication: Crohn^s disease
  8. VEDOLIZUMAB [Concomitant]
     Active Substance: VEDOLIZUMAB
     Indication: Crohn^s disease

REACTIONS (1)
  - Small intestinal stenosis [Recovered/Resolved]
